FAERS Safety Report 20862870 (Version 1)
Quarter: 2022Q2

REPORT INFORMATION
  Report Type: Spontaneous
  Country: US (occurrence: None)
  Receive Date: 20220523
  Receipt Date: 20220523
  Transmission Date: 20220720
  Serious: No
  Sender: FDA-Public Use
  Company Number: None

PATIENT
  Age: 38 Year
  Sex: Male
  Weight: 134 kg

DRUGS (1)
  1. ETODOLAC [Suspect]
     Active Substance: ETODOLAC
     Indication: Pain
     Dosage: FREQUENCY : TWICE A DAY;?
     Route: 048
     Dates: start: 20220226, end: 20220228

REACTIONS (3)
  - Swelling [None]
  - Headache [None]
  - Fatigue [None]

NARRATIVE: CASE EVENT DATE: 20220228
